FAERS Safety Report 17999423 (Version 1)
Quarter: 2020Q3

REPORT INFORMATION
  Report Type: Spontaneous
  Country: US (occurrence: US)
  Receive Date: 20200709
  Receipt Date: 20200709
  Transmission Date: 20201103
  Serious: Yes (Other)
  Sender: FDA-Public Use
  Company Number: None

PATIENT
  Age: 61 Year
  Sex: Male
  Weight: 76.5 kg

DRUGS (1)
  1. PANTOPRAZOLE SOD DR TABS 40 MG [Suspect]
     Active Substance: PANTOPRAZOLE SODIUM
     Indication: BARRETT^S OESOPHAGUS
     Dosage: ?          QUANTITY:90 TABLET(S);?
     Route: 048

REACTIONS (1)
  - Gastric polyps [None]

NARRATIVE: CASE EVENT DATE: 20200706
